FAERS Safety Report 12782245 (Version 1)
Quarter: 2016Q3

REPORT INFORMATION
  Report Type: Spontaneous
  Country: US (occurrence: US)
  Receive Date: 20160927
  Receipt Date: 20160927
  Transmission Date: 20161109
  Serious: Yes (Other)
  Sender: FDA-Public Use
  Company Number: US-BEH-200711257

PATIENT
  Age: 35 Year
  Sex: Male

DRUGS (5)
  1. IVIG [Suspect]
     Active Substance: HUMAN IMMUNOGLOBULIN G
     Dosage: DAILY DOSE QUANTITY: 2, DAILY DOSE UNIT: G/KG B.W.
     Route: 042
  2. ASPIRIN. [Concomitant]
     Active Substance: ASPIRIN
     Dosage: DAILY DOSE QUANTITY: 325, DAILY DOSE UNIT: MG
  3. METHYLPREDNISOLONE. [Concomitant]
     Active Substance: METHYLPREDNISOLONE
     Dosage: DAILY DOSE QUANTITY: 1, DAILY DOSE UNIT: G
     Route: 042
  4. NIMODIPINE. [Concomitant]
     Active Substance: NIMODIPINE
     Dosage: DAILY DOSE QUANTITY: 90, DAILY DOSE UNIT: MG
  5. PREDNISONE. [Concomitant]
     Active Substance: PREDNISONE
     Dosage: DAILY DOSE QUANTITY: 80, DAILY DOSE UNIT: MG

REACTIONS (1)
  - Seizure [Recovered/Resolved]
